FAERS Safety Report 23205276 (Version 1)
Quarter: 2023Q4

REPORT INFORMATION
  Report Type: Spontaneous
  Country: IQ (occurrence: IQ)
  Receive Date: 20231120
  Receipt Date: 20231120
  Transmission Date: 20240110
  Serious: Yes (Death, Hospitalization, Other)
  Sender: FDA-Public Use
  Company Number: IQ-SA-SAC20231120000206

PATIENT
  Age: 9 Month
  Sex: Female
  Weight: 6.5 kg

DRUGS (5)
  1. MYOZYME [Suspect]
     Active Substance: ALGLUCOSIDASE ALFA
     Indication: Glycogen storage disease type II
     Dosage: 2 DF, QOW
     Route: 042
     Dates: start: 20230601, end: 20231001
  2. LASIX [Concomitant]
     Active Substance: FUROSEMIDE
     Indication: Cardiac failure
     Dosage: 20 MG QD
     Route: 048
     Dates: start: 20230301, end: 20231105
  3. ENALAPRIL [Concomitant]
     Active Substance: ENALAPRIL
     Indication: Cardiac failure
     Dosage: 2.5 MG, QD
     Route: 048
     Dates: start: 20230301, end: 20231105
  4. ENOXAPARIN [Concomitant]
     Active Substance: ENOXAPARIN
     Indication: Cardiac failure
     Dosage: 2.5 MG, QD
     Route: 048
     Dates: start: 20230301, end: 20231105
  5. ACETAMINOPHEN [Concomitant]
     Active Substance: ACETAMINOPHEN
     Indication: Hyperthermia
     Dosage: 500 MG, BID
     Route: 042
     Dates: start: 20230601, end: 20231101

REACTIONS (4)
  - Cross sensitivity reaction [Fatal]
  - Floppy infant [Fatal]
  - Respiratory failure [Fatal]
  - Cardiac failure [Fatal]

NARRATIVE: CASE EVENT DATE: 20230828
